FAERS Safety Report 6788389-X (Version None)
Quarter: 2010Q2

REPORT INFORMATION
  Report Type: 
  Country: None (occurrence: None)
  Receive Date: 20100623
  Receipt Date: 20080304
  Transmission Date: 20101027
  Serious: No
  Sender: FDA-Public Use
  Company Number: US-PFIZER INC-2008020891

PATIENT
  Sex: Female
  Weight: 65.909 kg

DRUGS (3)
  1. DEPO-PROVERA SUSPENSION/INJ [Suspect]
     Indication: CONTRACEPTION
     Route: 030
     Dates: start: 20060401
  2. ALLEGRA D 24 HOUR [Concomitant]
  3. FLONASE [Concomitant]

REACTIONS (3)
  - DRUG ADMINISTRATION ERROR [None]
  - JOINT RANGE OF MOTION DECREASED [None]
  - MUSCULOSKELETAL PAIN [None]
